FAERS Safety Report 16193976 (Version 1)
Quarter: 2019Q2

REPORT INFORMATION
  Report Type: Report from Study
  Country: IE (occurrence: IE)
  Receive Date: 20190413
  Receipt Date: 20190413
  Transmission Date: 20190711
  Serious: Yes (Hospitalization, Other)
  Sender: FDA-Public Use
  Company Number: PHHY2018IE005896

PATIENT
  Age: 62 Year
  Sex: Female

DRUGS (3)
  1. AFINITOR [Suspect]
     Active Substance: EVEROLIMUS
     Indication: CARCINOID TUMOUR PULMONARY
     Dosage: 10 MG, UNK
     Route: 065
     Dates: start: 20170117, end: 20171230
  2. AFINITOR [Suspect]
     Active Substance: EVEROLIMUS
     Dosage: 10 MG, UNK
     Route: 065
  3. LYRICA [Suspect]
     Active Substance: PREGABALIN
     Indication: ORAL PAIN
     Route: 065

REACTIONS (26)
  - Herpes simplex [Recovered/Resolved]
  - Oral pain [Not Recovered/Not Resolved]
  - Pain [Unknown]
  - Dry skin [Recovered/Resolved]
  - Pruritus [Recovered/Resolved]
  - Musculoskeletal chest pain [Recovered/Resolved]
  - Cough [Recovered/Resolved]
  - Constipation [Not Recovered/Not Resolved]
  - Carcinoid tumour pulmonary [Unknown]
  - Tooth abscess [Recovered/Resolved]
  - Dry eye [Recovered/Resolved]
  - Weight decreased [Recovered/Resolved]
  - Viral infection [Unknown]
  - Metastases to lung [Unknown]
  - Malignant neoplasm progression [Unknown]
  - Pain [Recovered/Resolved]
  - Hypoaesthesia oral [Unknown]
  - Chest pain [Recovered/Resolved]
  - Somnolence [Unknown]
  - Fatigue [Not Recovered/Not Resolved]
  - Weight decreased [Unknown]
  - Cough [Unknown]
  - Parotid gland enlargement [Unknown]
  - Pain in jaw [Not Recovered/Not Resolved]
  - Psoriasis [Recovered/Resolved]
  - Chest pain [Recovering/Resolving]

NARRATIVE: CASE EVENT DATE: 20170404
